FAERS Safety Report 21989572 (Version 8)
Quarter: 2025Q1

REPORT INFORMATION
  Report Type: Spontaneous
  Country: US (occurrence: US)
  Receive Date: 20230214
  Receipt Date: 20250213
  Transmission Date: 20250408
  Serious: Yes (Other)
  Sender: GLAXOSMITHKLINE
  Company Number: US-GSK-US2023019815

PATIENT

DRUGS (5)
  1. BENLYSTA [Suspect]
     Active Substance: BELIMUMAB
     Indication: Systemic lupus erythematosus
     Dosage: 200 MG, WE
  2. BENLYSTA [Suspect]
     Active Substance: BELIMUMAB
     Indication: Product used for unknown indication
     Dosage: 200 MG, WE
     Route: 058
  3. HYDROXYCHLOROQUINE [Suspect]
     Active Substance: HYDROXYCHLOROQUINE
     Indication: Product used for unknown indication
  4. GABAPENTIN [Concomitant]
     Active Substance: GABAPENTIN
     Indication: Product used for unknown indication
  5. PREDNISONE [Concomitant]
     Active Substance: PREDNISONE
     Indication: Product used for unknown indication

REACTIONS (12)
  - Rheumatoid arthritis [Not Recovered/Not Resolved]
  - Hallucination [Unknown]
  - Systemic lupus erythematosus [Not Recovered/Not Resolved]
  - Psychotic disorder [Unknown]
  - Nausea [Unknown]
  - Vomiting [Unknown]
  - Vertigo [Unknown]
  - Depression [Unknown]
  - Mental disorder [Unknown]
  - Adverse drug reaction [Unknown]
  - Fibromyalgia [Unknown]
  - Product dose omission issue [Unknown]
